FAERS Safety Report 24276746 (Version 2)
Quarter: 2024Q3

REPORT INFORMATION
  Report Type: Spontaneous
  Country: US (occurrence: US)
  Receive Date: 20240903
  Receipt Date: 20240920
  Transmission Date: 20241017
  Serious: No
  Sender: BAYER
  Company Number: US-BAYER-2024A123464

PATIENT
  Age: 77 Year
  Sex: Female

DRUGS (6)
  1. MIRALAX [Suspect]
     Active Substance: POLYETHYLENE GLYCOL 3350
     Indication: Product used for unknown indication
     Dosage: UNK UNK, QD
     Route: 048
  2. DILTIAZEM [Concomitant]
     Active Substance: DILTIAZEM
     Indication: Prophylaxis
     Dosage: 180 MG
     Route: 048
     Dates: start: 1985
  3. IRBESARTAN [Concomitant]
     Active Substance: IRBESARTAN
     Indication: Prophylaxis
     Dosage: 250 MG, BID
     Route: 048
     Dates: start: 1895
  4. GABAPENTIN [Concomitant]
     Active Substance: GABAPENTIN
     Indication: Pain
     Dosage: 1X A DAY + 100MG - 1X A DAY
     Route: 048
  5. VIVELLE [Concomitant]
     Active Substance: ESTRADIOL
     Indication: Nutritional supplementation
     Dosage: 0.1MG - 1 1/2 PATCHES / 2X A WEEK
  6. MIRAPEX [Concomitant]
     Active Substance: PRAMIPEXOLE DIHYDROCHLORIDE
     Indication: Prophylaxis
     Dosage: 0.25 MG
     Route: 048

REACTIONS (3)
  - Oropharyngeal pain [Recovering/Resolving]
  - Wrong technique in product usage process [None]
  - Feeling abnormal [Recovered/Resolved]
